FAERS Safety Report 8691353 (Version 2)
Quarter: 2013Q3

REPORT INFORMATION
  Report Type: Spontaneous
  Country: AU (occurrence: AU)
  Receive Date: 20120730
  Receipt Date: 20130917
  Transmission Date: 20140515
  Serious: Yes (Other)
  Sender: FDA-Public Use
  Company Number: PHHY2012AU054981

PATIENT
  Age: 29 Year
  Sex: Female

DRUGS (3)
  1. TASIGNA [Suspect]
     Indication: HYPEREOSINOPHILIC SYNDROME
     Dosage: 400 MG, BID
     Route: 048
  2. TASIGNA [Suspect]
     Indication: CHRONIC EOSINOPHILIC LEUKAEMIA
     Dosage: 200 MG, BID
     Route: 048
  3. TASIGNA [Suspect]
     Indication: OFF LABEL USE

REACTIONS (11)
  - Hypereosinophilic syndrome [Unknown]
  - Cardiac disorder [Unknown]
  - Mucosal dryness [Recovering/Resolving]
  - Pruritus [Recovering/Resolving]
  - Rash [Recovering/Resolving]
  - Abdominal discomfort [Recovering/Resolving]
  - Myalgia [Recovering/Resolving]
  - Arthralgia [Recovering/Resolving]
  - Eosinophilia [Unknown]
  - Headache [Unknown]
  - Mouth ulceration [Unknown]
